FAERS Safety Report 10102915 (Version 2)
Quarter: 2014Q2

REPORT INFORMATION
  Report Type: Spontaneous
  Country: GB (occurrence: GB)
  Receive Date: 20140424
  Receipt Date: 20140424
  Transmission Date: 20141212
  Serious: Yes (Hospitalization)
  Sender: FDA-Public Use
  Company Number: PHHY2014GB010414

PATIENT
  Age: 48 Hour
  Sex: Female
  Weight: 2.26 kg

DRUGS (1)
  1. QUETIAPINE [Suspect]
     Dosage: 300 MG, QD
     Route: 064

REACTIONS (3)
  - Low birth weight baby [Unknown]
  - Vomiting [Recovering/Resolving]
  - Drug withdrawal syndrome neonatal [Recovering/Resolving]
